FAERS Safety Report 7167933-7 (Version None)
Quarter: 2010Q4

REPORT INFORMATION
  Report Type: 
  Country: None (occurrence: None)
  Receive Date: 20101216
  Receipt Date: 20101210
  Transmission Date: 20110411
  Serious: Yes (Hospitalization)
  Sender: FDA-Public Use
  Company Number: JP-PFIZER INC-2010172474

PATIENT
  Age: 79 Year
  Sex: Male

DRUGS (5)
  1. ZOSYN [Suspect]
     Indication: PNEUMONIA
     Dosage: 4.5 MG, 3X/DAY
     Route: 041
     Dates: start: 20101115, end: 20101118
  2. THEODUR ^ELAN^ [Suspect]
     Indication: CHRONIC OBSTRUCTIVE PULMONARY DISEASE
     Route: 048
  3. LASIX [Suspect]
     Indication: RIGHT VENTRICULAR FAILURE
     Route: 048
  4. BIOFERMIN [Suspect]
     Route: 048
  5. HALCION [Concomitant]
     Route: 048

REACTIONS (2)
  - DIALYSIS [None]
  - RENAL FAILURE ACUTE [None]
